FAERS Safety Report 11932721 (Version 5)
Quarter: 2016Q2

REPORT INFORMATION
  Report Type: Spontaneous
  Country: US (occurrence: US)
  Receive Date: 20160120
  Receipt Date: 20160411
  Transmission Date: 20160815
  Serious: Yes (Other)
  Sender: FDA-Public Use
  Company Number: US-CELGENE-USA-2016010597

PATIENT
  Age: 18 Year
  Sex: Female
  Weight: 47.22 kg

DRUGS (10)
  1. REVLIMID [Suspect]
     Active Substance: LENALIDOMIDE
     Route: 048
     Dates: start: 2015
  2. FLUOXETINE [Concomitant]
     Active Substance: FLUOXETINE HYDROCHLORIDE
     Indication: DEPRESSION
     Route: 048
     Dates: start: 2014
  3. REMICADE [Concomitant]
     Active Substance: INFLIXIMAB
     Indication: BEHCET^S SYNDROME
     Route: 065
     Dates: end: 20160105
  4. COLCHICINE. [Concomitant]
     Active Substance: COLCHICINE
     Indication: GENITAL ULCERATION
     Dosage: 0.6 MG
     Route: 048
     Dates: start: 20111118, end: 20160105
  5. REVLIMID [Suspect]
     Active Substance: LENALIDOMIDE
     Indication: BEHCET^S SYNDROME
     Route: 048
     Dates: start: 20150904
  6. REVLIMID [Suspect]
     Active Substance: LENALIDOMIDE
     Route: 048
     Dates: start: 20151120, end: 20151231
  7. COLCHICINE. [Concomitant]
     Active Substance: COLCHICINE
     Indication: MOUTH ULCERATION
  8. SERTRALINE [Concomitant]
     Active Substance: SERTRALINE HYDROCHLORIDE
     Indication: DEPRESSION
     Dosage: 110 MG
     Route: 048
  9. PRILOSEC [Concomitant]
     Active Substance: OMEPRAZOLE MAGNESIUM
     Indication: PRODUCT USED FOR UNKNOWN INDICATION
     Route: 065
  10. LORATADINE. [Concomitant]
     Active Substance: LORATADINE
     Indication: MULTIPLE ALLERGIES
     Route: 048
     Dates: start: 201511, end: 20160105

REACTIONS (4)
  - Pregnancy [Not Recovered/Not Resolved]
  - Dehydration [Not Recovered/Not Resolved]
  - Nausea [Not Recovered/Not Resolved]
  - Vaginal haemorrhage [Not Recovered/Not Resolved]

NARRATIVE: CASE EVENT DATE: 201512
